FAERS Safety Report 18415100 (Version 1)
Quarter: 2020Q4

REPORT INFORMATION
  Report Type: Spontaneous
  Country: US (occurrence: US)
  Receive Date: 20201022
  Receipt Date: 20201022
  Transmission Date: 20210114
  Serious: No
  Sender: FDA-Public Use
  Company Number: None

PATIENT
  Age: 33 Year
  Sex: Male

DRUGS (1)
  1. SILDENAFIL (SILDENAFIL CITRATE 20MG TAB) [Suspect]
     Active Substance: SILDENAFIL CITRATE
     Dates: start: 20200903

REACTIONS (2)
  - Cyanopsia [None]
  - Hypoacusis [None]

NARRATIVE: CASE EVENT DATE: 20200903
